FAERS Safety Report 15198232 (Version 1)
Quarter: 2018Q3

REPORT INFORMATION
  Report Type: Spontaneous
  Country: GB (occurrence: GB)
  Receive Date: 20180725
  Receipt Date: 20180725
  Transmission Date: 20181010
  Serious: Yes (Other)
  Sender: FDA-Public Use
  Company Number: GB-TEVA-2018-GB-914230

PATIENT
  Age: 70 Year
  Sex: Male
  Weight: 86.1 kg

DRUGS (12)
  1. OMEPRAZOLE. [Concomitant]
     Active Substance: OMEPRAZOLE
  2. LATANOPROST. [Interacting]
     Active Substance: LATANOPROST
     Dosage: MORNING ? 1 DROP INTO LEFT EYE ONCE DAILY
  3. ACETYLSALICYLIC ACID [Interacting]
     Active Substance: ASPIRIN
     Dosage: MORNING
     Route: 065
  4. OMEPRAZOLE. [Suspect]
     Active Substance: OMEPRAZOLE
     Indication: DYSPEPSIA
     Route: 065
  5. BETNESOL?N (BETAMETHASONE SODIUM PHOSPHATE\NEOMYCIN SULFATE) [Suspect]
     Active Substance: BETAMETHASONE SODIUM PHOSPHATE\NEOMYCIN SULFATE
     Route: 065
  6. ACETYLSALICYLIC ACID [Concomitant]
     Active Substance: ASPIRIN
  7. CARBOCISTEINE [Interacting]
     Active Substance: CARBOCYSTEINE
     Indication: PRODUCTIVE COUGH
     Route: 048
     Dates: start: 20180329, end: 20180412
  8. CANDESARTAN. [Interacting]
     Active Substance: CANDESARTAN
     Dosage: MORNING
     Route: 065
  9. CANDESARTAN. [Concomitant]
     Active Substance: CANDESARTAN
  10. EZETIMIBE. [Interacting]
     Active Substance: EZETIMIBE
     Dosage: MORNING
     Route: 065
  11. LATANOPROST. [Concomitant]
     Active Substance: LATANOPROST
  12. EZETIMIBE. [Concomitant]
     Active Substance: EZETIMIBE

REACTIONS (14)
  - Chest injury [Recovered/Resolved]
  - Drug interaction [Unknown]
  - Lethargy [Recovered/Resolved]
  - Dyspnoea exertional [Not Recovered/Not Resolved]
  - Vomiting [Recovered/Resolved]
  - Polyuria [Recovered/Resolved]
  - Chest discomfort [Not Recovered/Not Resolved]
  - Functional gastrointestinal disorder [Recovered/Resolved]
  - Eructation [Unknown]
  - Chest pain [Recovered/Resolved]
  - Renal disorder [Recovered/Resolved]
  - Movement disorder [Recovered/Resolved]
  - Burning sensation [Unknown]
  - Diarrhoea [Recovered/Resolved]

NARRATIVE: CASE EVENT DATE: 20180405
